FAERS Safety Report 8517492-9 (Version None)
Quarter: 2012Q3

REPORT INFORMATION
  Report Type: 
  Country: None (occurrence: None)
  Receive Date: 20120718
  Receipt Date: 20120712
  Transmission Date: 20120928
  Serious: Yes (Hospitalization)
  Sender: FDA-Public Use
  Company Number: DE-ROCHE-1088328

PATIENT
  Age: 64 Year
  Sex: Male
  Weight: 103 kg

DRUGS (1)
  1. ACTEMRA [Suspect]
     Indication: RHEUMATOID ARTHRITIS
     Route: 042
     Dates: start: 20110531

REACTIONS (3)
  - PAIN IN EXTREMITY [None]
  - RHEUMATOID ARTHRITIS [None]
  - ARTHRALGIA [None]
